FAERS Safety Report 9397915 (Version 2)
Quarter: 2013Q4

REPORT INFORMATION
  Report Type: Spontaneous
  Country: GB (occurrence: None)
  Receive Date: 20130709
  Receipt Date: 20131126
  Transmission Date: 20140711
  Serious: Yes (Other)
  Sender: FDA-Public Use
  Company Number: 2013AP006361

PATIENT
  Age: 66 Year
  Sex: Male

DRUGS (2)
  1. PERINDOPRIL [Suspect]
     Route: 048
     Dates: start: 20100113, end: 20130313
  2. RAMIPRIL (RAMIPRIL) [Concomitant]

REACTIONS (7)
  - Conjunctivitis [None]
  - Cellulitis [None]
  - Dermatitis [None]
  - Oedema peripheral [None]
  - Skin ulcer [None]
  - Lichen sclerosus [None]
  - Skin reaction [None]
